FAERS Safety Report 24934792 (Version 1)
Quarter: 2025Q1

REPORT INFORMATION
  Report Type: Spontaneous
  Country: AU (occurrence: AU)
  Receive Date: 20250206
  Receipt Date: 20250206
  Transmission Date: 20250408
  Serious: Yes (Death, Other)
  Sender: SANOFI AVENTIS
  Company Number: AU-SA-2025SA035263

PATIENT
  Age: 64 Year
  Sex: Male

DRUGS (4)
  1. ZOLPIDEM TARTRATE [Suspect]
     Active Substance: ZOLPIDEM TARTRATE
  2. CODEINE [Suspect]
     Active Substance: CODEINE
  3. ACETAMINOPHEN [Suspect]
     Active Substance: ACETAMINOPHEN
  4. ALCOHOL [Suspect]
     Active Substance: ALCOHOL

REACTIONS (2)
  - Completed suicide [Fatal]
  - Toxicity to various agents [Fatal]

NARRATIVE: CASE EVENT DATE: 20210912
